FAERS Safety Report 20694436 (Version 1)
Quarter: 2022Q2

REPORT INFORMATION
  Report Type: Spontaneous
  Country: IN (occurrence: IN)
  Receive Date: 20220411
  Receipt Date: 20220411
  Transmission Date: 20220721
  Serious: Yes (Hospitalization, Other)
  Sender: FDA-Public Use
  Company Number: IN-BoehringerIngelheim-2022-BI-163758

PATIENT
  Age: 71 Year
  Sex: Female

DRUGS (1)
  1. EMPAGLIFLOZIN [Suspect]
     Active Substance: EMPAGLIFLOZIN
     Indication: Type 2 diabetes mellitus

REACTIONS (3)
  - Euglycaemic diabetic ketoacidosis [Recovered/Resolved]
  - Large intestinal obstruction [Unknown]
  - Hydronephrosis [Unknown]
